FAERS Safety Report 15954052 (Version 6)
Quarter: 2022Q4

REPORT INFORMATION
  Report Type: Spontaneous
  Country: US (occurrence: US)
  Receive Date: 20190212
  Receipt Date: 20221214
  Transmission Date: 20230112
  Serious: Yes (Hospitalization, Other)
  Sender: FDA-Public Use
  Company Number: US-PFIZER INC-2019057924

PATIENT
  Age: 52 Year
  Sex: Male
  Weight: 79.38 kg

DRUGS (20)
  1. RAPAMUNE [Suspect]
     Active Substance: SIROLIMUS
     Indication: Transplant
     Dosage: 1 DF, DAILY (1 RAPAMUNE EVERY DAY)
  2. RAPAMUNE [Suspect]
     Active Substance: SIROLIMUS
     Indication: Heart transplant
     Dosage: 0.5 MG, 2X/DAY(ONE IN MORNING AND ON IN AFTERNOON)
  3. RAPAMUNE [Suspect]
     Active Substance: SIROLIMUS
     Indication: Cardiac disorder
     Dosage: 0.5 MG, DAILY
     Route: 048
  4. CELLCEPT [Suspect]
     Active Substance: MYCOPHENOLATE MOFETIL
     Dosage: UNK
  5. CYCLOSPORINE [Concomitant]
     Active Substance: CYCLOSPORINE
     Indication: Cardiac disorder
     Dosage: 50 MG, 2X/DAY (25MG SOFTCAPS, 2 IN THE MORNING AND 2 AT NIGHT)
  6. CYCLOSPORINE [Concomitant]
     Active Substance: CYCLOSPORINE
     Indication: Immune system disorder
  7. PREDNISONE [Concomitant]
     Active Substance: PREDNISONE
     Indication: Cardiac disorder
     Dosage: 3 MG, 1X/DAY
  8. FEBUXOSTAT [Concomitant]
     Active Substance: FEBUXOSTAT
     Indication: Gout
     Dosage: 40 MG, 1X/DAY
  9. COLCHICINE [Concomitant]
     Active Substance: COLCHICINE
     Indication: Gout
     Dosage: 0.6 MG, AS NEEDED
  10. ZETIA [Concomitant]
     Active Substance: EZETIMIBE
     Dosage: 10 MG, 1X/DAY
  11. CALCITRIOL [Concomitant]
     Active Substance: CALCITRIOL
     Dosage: 0.25 UG, 3X/DAY
  12. ATORVASTATIN [Concomitant]
     Active Substance: ATORVASTATIN
     Indication: Blood cholesterol abnormal
     Dosage: 10 MG, 1X/DAY (AT BEDTIME)
  13. ASPIRIN [Concomitant]
     Active Substance: ASPIRIN
     Indication: Anticoagulant therapy
     Dosage: 81 MG, 1X/DAY
  14. BUMETANIDE [Concomitant]
     Active Substance: BUMETANIDE
     Indication: Diuretic therapy
     Dosage: 1 MG, 1X/DAY (AT BEDTIME)
  15. BUMETANIDE [Concomitant]
     Active Substance: BUMETANIDE
     Dosage: 1 MG, AS NEEDED (TWICE TO THREE TIMES A DAY DEPENDING ON HOW MUCH I NEED)
  16. PLAVIX [Concomitant]
     Active Substance: CLOPIDOGREL BISULFATE
     Indication: Anticoagulant therapy
     Dosage: 75 MG, 1X/DAY
  17. EZETIMIBE [Concomitant]
     Active Substance: EZETIMIBE
     Dosage: 10 MG, 1X/DAY
  18. ULORIC [Concomitant]
     Active Substance: FEBUXOSTAT
     Indication: Gout
     Dosage: 40 MG, 1X/DAY
  19. TACROLIMUS [Concomitant]
     Active Substance: TACROLIMUS
     Indication: Cardiac disorder
     Dosage: 0.5 MG, 2X/DAY(TWO CAPSULES ONE IN THE MORNING AND ONE IN THE AFTERNOON)
  20. ALLOPURINOL [Concomitant]
     Active Substance: ALLOPURINOL
     Indication: Gout
     Dosage: 100 MG, 1X/DAY

REACTIONS (7)
  - Fluid retention [Unknown]
  - Renal disorder [Unknown]
  - Skin cancer [Unknown]
  - Coronary artery occlusion [Unknown]
  - Blood creatinine increased [Unknown]
  - Drug ineffective [Unknown]
  - Off label use [Unknown]
